FAERS Safety Report 16127405 (Version 1)
Quarter: 2019Q1

REPORT INFORMATION
  Report Type: Spontaneous
  Country: PR (occurrence: PR)
  Receive Date: 20190328
  Receipt Date: 20190328
  Transmission Date: 20190418
  Serious: No
  Sender: FDA-Public Use
  Company Number: PR-PFIZER INC-2019131771

PATIENT
  Age: 80 Year
  Sex: Female

DRUGS (1)
  1. LYRICA [Suspect]
     Active Substance: PREGABALIN
     Indication: MONONEUROPATHY
     Dosage: 75 MG, 3X/DAY

REACTIONS (1)
  - Drug hypersensitivity [Unknown]
